FAERS Safety Report 5852554-6 (Version None)
Quarter: 2008Q3

REPORT INFORMATION
  Report Type: 
  Country: None (occurrence: None)
  Receive Date: 20080819
  Receipt Date: 20080807
  Transmission Date: 20090109
  Serious: Yes (Hospitalization)
  Sender: FDA-Public Use
  Company Number: 2008BI020304

PATIENT
  Age: 40 Year
  Sex: Female
  Weight: 72.1219 kg

DRUGS (2)
  1. AVONEX [Suspect]
     Indication: MULTIPLE SCLEROSIS
     Dosage: 30 UG; QW; IM
     Route: 030
     Dates: start: 20080501
  2. MOTRIN [Concomitant]

REACTIONS (8)
  - CHILLS [None]
  - CONTUSION [None]
  - DEHYDRATION [None]
  - GASTROINTESTINAL INFECTION [None]
  - GASTROINTESTINAL INFLAMMATION [None]
  - INFLUENZA LIKE ILLNESS [None]
  - PAIN [None]
  - POLYMENORRHOEA [None]
